FAERS Safety Report 11726910 (Version 1)
Quarter: 2015Q4

REPORT INFORMATION
  Report Type: Spontaneous
  Country: GB (occurrence: GB)
  Receive Date: 20151112
  Receipt Date: 20151112
  Transmission Date: 20160304
  Serious: Yes (Disabling)
  Sender: FDA-Public Use
  Company Number: GB-WATSON-2015-12804

PATIENT
  Age: 71 Year
  Sex: Female
  Weight: 65.38 kg

DRUGS (9)
  1. GLUCOSAMINE + CHONDROITIN          /01625901/ [Concomitant]
     Indication: PRODUCT USED FOR UNKNOWN INDICATION
     Dosage: UNK
     Route: 065
  2. OMEGA-3 FATTY ACIDS [Concomitant]
     Active Substance: OMEGA-3 FATTY ACIDS
     Indication: PRODUCT USED FOR UNKNOWN INDICATION
     Dosage: UNK; 3,6,9
     Route: 065
  3. LEVOTHYROXINE. [Concomitant]
     Active Substance: LEVOTHYROXINE
     Indication: THYROID DISORDER
     Dosage: 25 ?G, DAILY
     Route: 065
     Dates: start: 2004
  4. OMEGA 9 FATTY ACIDS [Concomitant]
     Indication: PRODUCT USED FOR UNKNOWN INDICATION
     Dosage: UNK
     Route: 065
  5. RAMIPRIL. [Concomitant]
     Active Substance: RAMIPRIL
     Indication: BLOOD PRESSURE MEASUREMENT
     Dosage: 2.5 MG, DAILY
     Route: 065
     Dates: end: 201502
  6. CALCICHEW D3 [Concomitant]
     Active Substance: CALCIUM\CHOLECALCIFEROL
     Indication: PRODUCT USED FOR UNKNOWN INDICATION
     Dosage: UNK, 1/ THREE WEEKS; 535.7143 UNKNOWN DAILY;
     Route: 065
     Dates: start: 2003
  7. AMITRIPTYLINE [Suspect]
     Active Substance: AMITRIPTYLINE
     Indication: ESSENTIAL TREMOR
     Dosage: 25 MG, DAILY
     Route: 065
     Dates: start: 2003, end: 20150404
  8. NORTRIPTYLINE HYDROCHLORIDE (WATSON LABORATORIES) [Suspect]
     Active Substance: NORTRIPTYLINE HYDROCHLORIDE
     Indication: PRODUCT USED FOR UNKNOWN INDICATION
     Dosage: UNK
     Route: 065
  9. OMEGA-6 FATTY ACIDS [Concomitant]
     Active Substance: OMEGA-6 FATTY ACIDS
     Indication: PRODUCT USED FOR UNKNOWN INDICATION
     Dosage: UNK
     Route: 065

REACTIONS (7)
  - Abdominal pain [Recovered/Resolved]
  - Dysgeusia [Recovered/Resolved]
  - Malaise [Recovered/Resolved]
  - Diarrhoea [Recovered/Resolved]
  - Malaise [Recovered/Resolved]
  - Abdominal discomfort [Recovered/Resolved]
  - Oral mucosal blistering [Unknown]

NARRATIVE: CASE EVENT DATE: 201412
